FAERS Safety Report 11610947 (Version 4)
Quarter: 2015Q4

REPORT INFORMATION
  Report Type: Spontaneous
  Country: US (occurrence: US)
  Receive Date: 20151008
  Receipt Date: 20151215
  Transmission Date: 20160304
  Serious: No
  Sender: FDA-Public Use
  Company Number: US-PFIZER INC-2015332342

PATIENT
  Age: 57 Year
  Sex: Male
  Weight: 88 kg

DRUGS (4)
  1. VIAGRA [Suspect]
     Active Substance: SILDENAFIL CITRATE
     Indication: SEXUAL DYSFUNCTION
     Dosage: 25 MG, 2 OR 4 TIMES A MONTH (WOULD BREAK IT INTO HALF AND TAKE IT)
  2. VIAGRA [Suspect]
     Active Substance: SILDENAFIL CITRATE
     Indication: DIABETES MELLITUS
     Dosage: 20 MG, 1X/DAY
  3. LEVITRA [Suspect]
     Active Substance: VARDENAFIL HYDROCHLORIDE TRIHYDRATE
     Indication: SEXUAL DYSFUNCTION
     Dosage: 2 OR 4 TIMES A MONTH
  4. LEVITRA [Suspect]
     Active Substance: VARDENAFIL HYDROCHLORIDE TRIHYDRATE
     Indication: DIABETES MELLITUS
     Dosage: 20 MG, 1X/DAY

REACTIONS (1)
  - Gastrooesophageal reflux disease [Not Recovered/Not Resolved]
